FAERS Safety Report 4522271-3 (Version None)
Quarter: 2004Q4

REPORT INFORMATION
  Report Type: 
  Country: None (occurrence: None)
  Receive Date: 20041207
  Receipt Date: 20041119
  Transmission Date: 20050328
  Serious: Yes (Other)
  Sender: FDA-Public Use
  Company Number: USA041184295

PATIENT
  Age: 78 Year
  Sex: Male

DRUGS (2)
  1. GEMZAR [Suspect]
     Indication: PLEURAL MESOTHELIOMA
     Dates: start: 20030101, end: 20040901
  2. VITAMIN B COMPLEX CAP [Concomitant]

REACTIONS (5)
  - COUGH [None]
  - DYSPNOEA [None]
  - EPISTAXIS [None]
  - NEOPLASM RECURRENCE [None]
  - PLATELET COUNT DECREASED [None]
